FAERS Safety Report 11737496 (Version 11)
Quarter: 2017Q3

REPORT INFORMATION
  Report Type: Spontaneous
  Country: US (occurrence: US)
  Receive Date: 20151113
  Receipt Date: 20170831
  Transmission Date: 20171127
  Serious: Yes (Other)
  Sender: FDA-Public Use
  Company Number: PHEH2015US023477

PATIENT
  Sex: Female
  Weight: 56.24 kg

DRUGS (2)
  1. ZOFRAN [Suspect]
     Active Substance: ONDANSETRON HYDROCHLORIDE
     Indication: VOMITING IN PREGNANCY
     Dosage: 4 MG PER 2 ML, QD
     Route: 042
     Dates: start: 20130625, end: 20130628
  2. ZOFRAN [Suspect]
     Active Substance: ONDANSETRON HYDROCHLORIDE
     Indication: VOMITING IN PREGNANCY
     Dosage: 4 MG, UNK
     Route: 048
     Dates: start: 20121127

REACTIONS (21)
  - Depression [Unknown]
  - Anxiety [Unknown]
  - Pre-eclampsia [Unknown]
  - Weight increased [Unknown]
  - Attention deficit/hyperactivity disorder [Unknown]
  - Migraine [Unknown]
  - Injury [Unknown]
  - Renal colic [Unknown]
  - Emotional distress [Unknown]
  - Headache [Unknown]
  - Maternal exposure during pregnancy [Unknown]
  - Syncope [Unknown]
  - Product use in unapproved indication [Unknown]
  - Polyhydramnios [Unknown]
  - Blood urine present [Unknown]
  - Post-traumatic stress disorder [Unknown]
  - Pyrexia [Unknown]
  - Hypertension [Unknown]
  - Arrhythmia [Unknown]
  - Pain [Unknown]
  - Palpitations [Unknown]
